FAERS Safety Report 6905788-3 (Version None)
Quarter: 2010Q3

REPORT INFORMATION
  Report Type: 
  Country: None (occurrence: None)
  Receive Date: 20100730
  Receipt Date: 20100721
  Transmission Date: 20110219
  Serious: Yes (Other)
  Sender: FDA-Public Use
  Company Number: 2010US002570

PATIENT
  Age: 56 Year
  Sex: Female

DRUGS (10)
  1. LEXISCAN [Suspect]
     Indication: SCAN MYOCARDIAL PERFUSION
     Dosage: 1 DF, TOTAL DOSE, IV NOS
     Route: 042
     Dates: start: 20100628, end: 20100628
  2. CALCIUM 600 + D (CALCIUM CARBONATE, COLECALCIFEROL) [Concomitant]
  3. POTASSIUM (POTASSIUM) [Concomitant]
  4. CALCITRIOL [Concomitant]
  5. LEVOTHYROXINE SODIUM [Concomitant]
  6. PROPRANOLOL [Concomitant]
  7. FUROSEMIDE [Concomitant]
  8. FEXOFENADINE HCL [Concomitant]
  9. ADVAIR DISKUS 100/50 [Concomitant]
  10. VENTOLIN HFA (SALBUMATOL SULFATE) [Concomitant]

REACTIONS (10)
  - ASTHENIA [None]
  - CHEST DISCOMFORT [None]
  - DIZZINESS [None]
  - DYSPNOEA [None]
  - FEELING ABNORMAL [None]
  - HEADACHE [None]
  - MALAISE [None]
  - NAUSEA [None]
  - THROAT TIGHTNESS [None]
  - WHEEZING [None]
